FAERS Safety Report 16802184 (Version 1)
Quarter: 2019Q3

REPORT INFORMATION
  Report Type: Spontaneous
  Country: US (occurrence: US)
  Receive Date: 20190912
  Receipt Date: 20190912
  Transmission Date: 20191005
  Serious: Yes (Other)
  Sender: FDA-Public Use
  Company Number: US-PFIZER INC-2019379653

PATIENT

DRUGS (2)
  1. BACTERIOSTATIC SODIUM CHLORIDE [Suspect]
     Active Substance: SODIUM CHLORIDE
     Dosage: UNK (INJECTION OF ADRENALIZED SERUM THAT WAS MIXED WITH AN INJECTION OF SALINE)
  2. EPINEPHRINE. [Suspect]
     Active Substance: EPINEPHRINE
     Dosage: UNK (INJECTION ADRENALIZED SERUM THAT WAS MIXED WITH AN INJECTION OF SALINE)

REACTIONS (1)
  - Gangrene [Unknown]
